FAERS Safety Report 7915866-8 (Version None)
Quarter: 2011Q4

REPORT INFORMATION
  Report Type: 
  Country: None (occurrence: None)
  Receive Date: 20111115
  Receipt Date: 20111107
  Transmission Date: 20120403
  Serious: Yes (Death)
  Sender: FDA-Public Use
  Company Number: ES-MILLENNIUM PHARMACEUTICALS, INC.-2011-05565

PATIENT

DRUGS (4)
  1. VELCADE [Suspect]
     Indication: MULTIPLE MYELOMA
     Dosage: 1.3 MG/M2, CYCLIC
  2. DEXAMETHASONE [Suspect]
     Indication: MULTIPLE MYELOMA
     Dosage: UNK
  3. FLUDARABINE PHOSPHATE [Suspect]
     Indication: MULTIPLE MYELOMA
     Dosage: 30 MG/M2, CYCLIC
     Route: 042
  4. MELPHALAN HYDROCHLORIDE [Suspect]
     Indication: MULTIPLE MYELOMA
     Dosage: 70 MG/M2, CYCLIC
     Route: 042

REACTIONS (1)
  - DEATH [None]
